FAERS Safety Report 4356160-4 (Version None)
Quarter: 2004Q2

REPORT INFORMATION
  Report Type: 
  Country: None (occurrence: None)
  Receive Date: 20040506
  Receipt Date: 20040428
  Transmission Date: 20050107
  Serious: Yes (Other)
  Sender: FDA-Public Use
  Company Number: 2004211390BR

PATIENT
  Sex: Male

DRUGS (2)
  1. ALPRAZOLAM [Suspect]
     Indication: NERVOUSNESS
     Dosage: 0.5MG/DAY, ORAL
     Route: 048
     Dates: start: 20040408
  2. PAROXETINE HCL [Concomitant]

REACTIONS (1)
  - ERECTILE DYSFUNCTION [None]
